FAERS Safety Report 24290793 (Version 1)
Quarter: 2024Q3

REPORT INFORMATION
  Report Type: Spontaneous
  Country: DE (occurrence: DE)
  Receive Date: 20240906
  Receipt Date: 20240906
  Transmission Date: 20241017
  Serious: Yes (Other)
  Sender: SANDOZ
  Company Number: None

PATIENT
  Age: 27 Year
  Sex: Female

DRUGS (18)
  1. CYTARABINE [Suspect]
     Active Substance: CYTARABINE
     Indication: Burkitt^s lymphoma
     Dosage: 300 MG/M2 (OVER 1 H (BLOCK A))
     Route: 042
  2. DOXORUBICIN HYDROCHLORIDE [Suspect]
     Active Substance: DOXORUBICIN HYDROCHLORIDE
     Indication: Burkitt^s lymphoma
     Dosage: 50 MG/M2 (AFTER AT LEAST 14 DAYS (BLOCK B))
     Route: 042
  3. ETOPOSIDE [Suspect]
     Active Substance: ETOPOSIDE
     Indication: Burkitt^s lymphoma
     Dosage: UNK (IMVP REGIMEN)
     Route: 065
  4. CYCLOPHOSPHAMIDE [Suspect]
     Active Substance: CYCLOPHOSPHAMIDE
     Indication: Burkitt^s lymphoma
     Dosage: 200 MG/M2 (LYOPHILISAT) (PRELIMINARY PHASE (FACULTATIVE) FOR 1-5 DAYS)
     Route: 042
  5. CYCLOPHOSPHAMIDE [Suspect]
     Active Substance: CYCLOPHOSPHAMIDE
     Indication: Product used for unknown indication
     Dosage: 200 MG/M2 (LYOPHILISAT) INTRAVENOUSLY OR ORALLY DIRECTLY AFTERWARD (BLOCK A) ON 1-5 DAYS
     Route: 065
  6. CYCLOPHOSPHAMIDE [Suspect]
     Active Substance: CYCLOPHOSPHAMIDE
     Dosage: 200 MG/M2 (FOR 1-5 DAYS, AFTER AT LEAST 14 DAYS (BLOCK B)
     Route: 042
  7. IFOSFAMIDE [Suspect]
     Active Substance: IFOSFAMIDE
     Indication: Burkitt^s lymphoma
     Dosage: UNK (IMVP REGIMEN)
     Route: 065
  8. METHOTREXATE [Suspect]
     Active Substance: METHOTREXATE
     Indication: Burkitt^s lymphoma
     Dosage: 15 MG (BLOCK A)
     Route: 037
  9. METHOTREXATE [Suspect]
     Active Substance: METHOTREXATE
     Indication: Burkitt^s lymphoma
     Dosage: 15 MG (AFTER AT LEAST 14 DAYS (BLOCK B))
     Route: 037
  10. METHOTREXATE [Suspect]
     Active Substance: METHOTREXATE
     Dosage: 200 MG/M2 (FOR 1-5 DAYS, AFTER AT LEAST 14 DAYS (BLOCK B))
     Route: 042
  11. METHOTREXATE [Suspect]
     Active Substance: METHOTREXATE
     Indication: Product used for unknown indication
     Dosage: 450 MG/M2 (OVER 24 H (BLOCK A))
     Route: 042
  12. METHOTREXATE [Suspect]
     Active Substance: METHOTREXATE
     Indication: Burkitt^s lymphoma
     Dosage: 50 MG/M2 (AFTER AT LEAST 14 DAYS, BOLUS (BLOCK B))
     Route: 042
  13. METHOTREXATE [Suspect]
     Active Substance: METHOTREXATE
     Indication: Burkitt^s lymphoma
     Dosage: 50 MG/M2 (INTRAVENOUSLY AS BOLUS (BLOCK A))
     Route: 042
  14. METHOTREXATE [Suspect]
     Active Substance: METHOTREXATE
     Indication: Product used for unknown indication
     Dosage: UNK (IMVP REGIMEN)
     Route: 065
  15. PREDNISONE [Suspect]
     Active Substance: PREDNISONE
     Indication: Burkitt^s lymphoma
     Dosage: UNK (0.5-1 MG/KG, ON DAYS 1-5 AS PRELIMINARY PHASE (FACULTATIVE))
     Route: 048
  16. PREDNISONE [Suspect]
     Active Substance: PREDNISONE
     Indication: Adjuvant therapy
     Dosage: UNK (IMVP REGIMEN)
     Route: 065
  17. TENIPOSIDE [Suspect]
     Active Substance: TENIPOSIDE
     Indication: Burkitt^s lymphoma
     Dosage: 165 MG/M2 (OVER 1 H (BLOCK A))
     Route: 042
  18. LEUCOVORIN [Concomitant]
     Active Substance: LEUCOVORIN\LEUCOVORIN CALCIUM
     Indication: Prophylaxis
     Dosage: 30 MG (30 MG EACH 36, 42, 48, 54, 60, AND 66 H AFTER THE METHOTREXATE INFUSION)
     Route: 065

REACTIONS (2)
  - Alopecia [Unknown]
  - Leukopenia [Unknown]
